FAERS Safety Report 21536516 (Version 1)
Quarter: 2022Q4

REPORT INFORMATION
  Report Type: Spontaneous
  Country: US (occurrence: None)
  Receive Date: 20221031
  Receipt Date: 20221031
  Transmission Date: 20230113
  Serious: No
  Sender: FDA-Public Use
  Company Number: None

PATIENT
  Age: 72 Year
  Sex: Female
  Weight: 54.11 kg

DRUGS (10)
  1. LENALIDOMIDE [Suspect]
     Active Substance: LENALIDOMIDE
     Dosage: FREQUENCY : DAILY;?
     Route: 048
     Dates: start: 20221017
  2. ACYCLOVIR [Concomitant]
  3. ARTIFICAL TEARS [Concomitant]
  4. ASPIRIN [Concomitant]
  5. BOOSTRIX [Concomitant]
  6. CARBIDOPA-LEVODOPA [Concomitant]
  7. PREVNAR [Concomitant]
  8. SHINGRIX [Concomitant]
  9. TWINRIX [Concomitant]
  10. VITAMIN D2 [Concomitant]
     Active Substance: ERGOCALCIFEROL

REACTIONS (1)
  - COVID-19 [None]
